FAERS Safety Report 10392551 (Version 5)
Quarter: 2016Q3

REPORT INFORMATION
  Report Type: Report from Study
  Country: ZA (occurrence: ZA)
  Receive Date: 20140819
  Receipt Date: 20160803
  Transmission Date: 20161109
  Serious: Yes (Other)
  Sender: FDA-Public Use
  Company Number: PHHY2014ZA101444

PATIENT
  Age: 62 Year
  Sex: Female

DRUGS (6)
  1. ACLASTA [Suspect]
     Active Substance: ZOLEDRONIC ACID
     Indication: OSTEOPOROSIS
     Dosage: UNK
     Route: 042
     Dates: start: 2010
  2. ACLASTA [Suspect]
     Active Substance: ZOLEDRONIC ACID
     Dosage: 1 DF (5 MG/100 ML), UNK
     Route: 042
     Dates: start: 201308, end: 201308
  3. ACLASTA [Suspect]
     Active Substance: ZOLEDRONIC ACID
     Dosage: 1 DF (5 MG/100 DL), UNK
     Route: 042
     Dates: start: 2011, end: 2011
  4. ACLASTA [Suspect]
     Active Substance: ZOLEDRONIC ACID
     Dosage: 1 DF (5 MG/ 100 ML)  (5 INFUSION RECEIVED), UNK
     Route: 042
     Dates: start: 20140811, end: 20140811
  5. ACLASTA [Suspect]
     Active Substance: ZOLEDRONIC ACID
     Dosage: (5 MG/100 ML)
     Route: 042
     Dates: start: 201507
  6. CORTISONE [Concomitant]
     Active Substance: CORTISONE\HYDROCORTISONE
     Indication: PRODUCT USED FOR UNKNOWN INDICATION
     Route: 065

REACTIONS (7)
  - Bone density decreased [Unknown]
  - Haemorrhage [Unknown]
  - Panic reaction [Unknown]
  - Non-Hodgkin^s lymphoma [Unknown]
  - Platelet count decreased [Recovered/Resolved]
  - Poor venous access [Unknown]
  - Anxiety [Unknown]

NARRATIVE: CASE EVENT DATE: 2011
